FAERS Safety Report 7203442-4 (Version None)
Quarter: 2010Q4

REPORT INFORMATION
  Report Type: 
  Country: None (occurrence: None)
  Receive Date: 20101230
  Receipt Date: 20101220
  Transmission Date: 20110411
  Serious: Yes (Death)
  Sender: FDA-Public Use
  Company Number: CO-PFIZER INC-2010167316

PATIENT
  Age: 70 Year
  Sex: Female

DRUGS (3)
  1. LIPITOR [Suspect]
     Indication: DYSLIPIDAEMIA
     Dosage: 10 MG, 1X/DAY
     Route: 048
     Dates: start: 20040922
  2. OLMESARTAN MEDOXOMIL AND HYDROCHLOROTHIZIDE [Suspect]
     Dosage: 20 + 12.5 MG 1X/DAY
     Route: 048
  3. ENALAPRIL [Concomitant]
     Dosage: UNK

REACTIONS (1)
  - BREAST CANCER METASTATIC [None]
